FAERS Safety Report 17059579 (Version 3)
Quarter: 2020Q1

REPORT INFORMATION
  Report Type: Spontaneous
  Country: US (occurrence: US)
  Receive Date: 20191121
  Receipt Date: 20200110
  Transmission Date: 20200409
  Serious: Yes (Hospitalization)
  Sender: FDA-Public Use
  Company Number: US-GW PHARMA-201911USGW4251

PATIENT

DRUGS (1)
  1. EPIDIOLEX [Suspect]
     Active Substance: CANNABIDIOL
     Indication: SEVERE MYOCLONIC EPILEPSY OF INFANCY
     Dosage: 690 MILLIGRAM, QD (340 MG IN AM AND 350 MG IN PM)
     Route: 048
     Dates: start: 201903

REACTIONS (3)
  - Gait disturbance [Recovering/Resolving]
  - Tooth abscess [Recovered/Resolved]
  - Post procedural fever [Recovered/Resolved]

NARRATIVE: CASE EVENT DATE: 20191025
